FAERS Safety Report 4348295-7 (Version None)
Quarter: 2004Q2

REPORT INFORMATION
  Report Type: 
  Country: None (occurrence: None)
  Receive Date: 20040422
  Receipt Date: 20040416
  Transmission Date: 20050107
  Serious: Yes (Hospitalization)
  Sender: FDA-Public Use
  Company Number: 200411169GDS

PATIENT
  Age: 71 Year
  Sex: Female

DRUGS (11)
  1. ASPIRIN [Suspect]
     Indication: PROPHYLAXIS
     Dosage: 100 MG, TOTAL DAILY, ORAL
     Route: 048
     Dates: end: 20040219
  2. PAROXETINE HCL [Suspect]
     Indication: DEPRESSION
     Dosage: 20 MG, TOTAL DAILY, ORAL
     Route: 048
  3. CLOPIDOGREL [Suspect]
     Indication: PROPHYLAXIS
     Dosage: 75 MG, TOTAL DAILY, ORAL
     Route: 048
     Dates: end: 20040219
  4. PANTOPRAZOLE [Concomitant]
  5. ACETAMINOPHEN [Concomitant]
  6. AMLODIPINE [Concomitant]
  7. ENALAPRIL MALEATE [Concomitant]
  8. OXAZEPAM [Concomitant]
  9. METOPROLOL [Concomitant]
  10. CLOMETHIAZOLE [Concomitant]
  11. DICLOFENAC/MISOPROSTOL [Concomitant]

REACTIONS (3)
  - PARAESTHESIA [None]
  - PARESIS [None]
  - SUBDURAL HAEMATOMA [None]
